FAERS Safety Report 19610864 (Version 4)
Quarter: 2022Q2

REPORT INFORMATION
  Report Type: Report from Study
  Country: US (occurrence: US)
  Receive Date: 20210726
  Receipt Date: 20220509
  Transmission Date: 20220721
  Serious: Yes (Other)
  Sender: FDA-Public Use
  Company Number: US-OTSUKA-2020_033147

PATIENT
  Age: 61 Year
  Sex: Male

DRUGS (8)
  1. TOLVAPTAN [Suspect]
     Active Substance: TOLVAPTAN
     Indication: Congenital cystic kidney disease
     Dosage: 30 MG
     Route: 065
  2. TOLVAPTAN [Suspect]
     Active Substance: TOLVAPTAN
     Dosage: 15 MG
     Route: 065
  3. TOLVAPTAN [Suspect]
     Active Substance: TOLVAPTAN
     Dosage: 45 MG
     Route: 065
     Dates: start: 20201106, end: 202101
  4. TOLVAPTAN [Suspect]
     Active Substance: TOLVAPTAN
     Dosage: 15 MG
     Route: 065
  5. TOLVAPTAN [Suspect]
     Active Substance: TOLVAPTAN
     Dosage: UNK
     Route: 065
     Dates: start: 20201102
  6. PRALUENT [Concomitant]
     Active Substance: ALIROCUMAB
     Indication: Product used for unknown indication
     Dosage: 75MG/ML PNLJ
     Route: 058
     Dates: start: 20220318
  7. LEXAPRO [Concomitant]
     Active Substance: ESCITALOPRAM OXALATE
     Indication: Product used for unknown indication
     Dosage: 20MG TABLET
     Route: 048
     Dates: start: 20220127
  8. COZAAR [Concomitant]
     Active Substance: LOSARTAN POTASSIUM
     Indication: Product used for unknown indication
     Dosage: 50MG TABLET
     Route: 048
     Dates: start: 20210722

REACTIONS (13)
  - Insomnia [Not Recovered/Not Resolved]
  - Drug intolerance [Unknown]
  - Ill-defined disorder [Unknown]
  - COVID-19 [Not Recovered/Not Resolved]
  - Weight decreased [Unknown]
  - Insomnia [Recovering/Resolving]
  - Blood bilirubin increased [Unknown]
  - Nocturia [Recovering/Resolving]
  - Thirst [Recovering/Resolving]
  - Polyuria [Unknown]
  - Decreased appetite [Unknown]
  - Diarrhoea [Unknown]
  - Underdose [Unknown]

NARRATIVE: CASE EVENT DATE: 20201106
